FAERS Safety Report 17009670 (Version 4)
Quarter: 2019Q4

REPORT INFORMATION
  Report Type: Spontaneous
  Country: US (occurrence: US)
  Receive Date: 20191108
  Receipt Date: 20191220
  Transmission Date: 20200122
  Serious: Yes (Hospitalization, Other)
  Sender: FDA-Public Use
  Company Number: US-PFIZER INC-2019478778

PATIENT
  Age: 65 Year
  Sex: Male
  Weight: 102.6 kg

DRUGS (8)
  1. CHANTIX [Suspect]
     Active Substance: VARENICLINE TARTRATE
     Indication: TOBACCO ABUSE
     Dosage: UNK
     Dates: start: 201904, end: 20191113
  2. CHANTIX [Suspect]
     Active Substance: VARENICLINE TARTRATE
     Dosage: UNK
     Dates: start: 20191028
  3. CHANTIX [Suspect]
     Active Substance: VARENICLINE TARTRATE
     Indication: SMOKING CESSATION THERAPY
     Dosage: ^PER PACKAGE INSTRUCTION - STARTING WEEK AFTER DAY 3, START TWO TABLETS PER DAY, 0.5 MG^
     Route: 048
     Dates: start: 20121020
  4. CHANTIX [Suspect]
     Active Substance: VARENICLINE TARTRATE
     Dosage: UNK (TAKE 0.5MG TABLET BY MOUTH FOR THREE DAYS, THEN TAKE 5 MG TABLET TWICE, BY MOUTH FOR FOUR DAYS)
     Route: 048
     Dates: start: 20190904, end: 201910
  5. CHANTIX [Suspect]
     Active Substance: VARENICLINE TARTRATE
     Dosage: 1 MG, 2X/DAY
     Route: 048
  6. CHANTIX [Suspect]
     Active Substance: VARENICLINE TARTRATE
     Dosage: 1 DF, DAILY
     Dates: start: 2019, end: 20191113
  7. CHANTIX [Suspect]
     Active Substance: VARENICLINE TARTRATE
     Dosage: 1 MG, 1X/DAY(HE STILL ONLY TOOK ONE TABLET PER DAY INSTEAD OF TWO PER DAY)
     Route: 048
  8. NICOTINE. [Suspect]
     Active Substance: NICOTINE
     Dosage: UNK
     Dates: start: 2019

REACTIONS (3)
  - Intentional product misuse [Unknown]
  - Expired product administered [Unknown]
  - Lung neoplasm malignant [Recovered/Resolved]

NARRATIVE: CASE EVENT DATE: 20191028
